FAERS Safety Report 7889860-X (Version None)
Quarter: 2011Q4

REPORT INFORMATION
  Report Type: 
  Country: None (occurrence: None)
  Receive Date: 20111103
  Receipt Date: 20111029
  Transmission Date: 20120403
  Serious: Yes (Other)
  Sender: FDA-Public Use
  Company Number: US-GLAXOSMITHKLINE-A0951594A

PATIENT
  Age: 44 Year
  Sex: Female
  Weight: 54.5 kg

DRUGS (1)
  1. ARIXTRA [Suspect]
     Indication: PRODUCT USED FOR UNKNOWN INDICATION
     Dosage: 2.5MG UNKNOWN
     Route: 058
     Dates: start: 20111014, end: 20111025

REACTIONS (1)
  - DEEP VEIN THROMBOSIS [None]
